FAERS Safety Report 4667951-4 (Version None)
Quarter: 2005Q2

REPORT INFORMATION
  Report Type: 
  Country: None (occurrence: None)
  Receive Date: 20050520
  Receipt Date: 20041008
  Transmission Date: 20051028
  Serious: Yes (Other)
  Sender: FDA-Public Use
  Company Number: PHEH2004US13116

PATIENT
  Age: 72 Year
  Sex: Female
  Weight: 159 kg

DRUGS (14)
  1. ZOMETA [Suspect]
     Indication: METASTASES TO BONE
     Dosage: 4MG Q4W
     Route: 042
     Dates: start: 20020212
  2. TAXOTERE [Concomitant]
  3. ARIMIDEX [Concomitant]
  4. ADRIAMYCIN PFS [Concomitant]
  5. TAMOXIFEN [Concomitant]
  6. FEMARA [Concomitant]
  7. FASLODEX [Concomitant]
  8. XELODA [Concomitant]
  9. NAVELBINE [Concomitant]
  10. GEMZAR [Concomitant]
  11. AROMASIN [Concomitant]
  12. CYTOXAN [Concomitant]
  13. METHOTREXATE [Concomitant]
  14. FLUOROURACIL [Concomitant]

REACTIONS (1)
  - OSTEOMYELITIS [None]
